FAERS Safety Report 4358305-9 (Version None)
Quarter: 2004Q2

REPORT INFORMATION
  Report Type: 
  Country: None (occurrence: None)
  Receive Date: 20040511
  Receipt Date: 20040426
  Transmission Date: 20050107
  Serious: Yes (Hospitalization)
  Sender: FDA-Public Use
  Company Number: US-JNJFOC-20040106072

PATIENT
  Age: 85 Year
  Sex: Female
  Weight: 48.0813 kg

DRUGS (7)
  1. INFLIXIMAB (INFLIXIMAB, RECOMBINANT) [Suspect]
     Indication: CROHN'S DISEASE
     Dosage: 5 MG/KG, INTRAVENOUS
     Route: 042
     Dates: start: 20001124
  2. INFLIXIMAB (INFLIXIMAB, RECOMBINANT) [Suspect]
     Indication: CROHN'S DISEASE
     Dosage: 5 MG/KG, INTRAVENOUS
     Route: 042
     Dates: start: 20001220
  3. INFLIXIMAB (INFLIXIMAB, RECOMBINANT) [Suspect]
     Indication: CROHN'S DISEASE
     Dosage: 5 MG/KG, INTRAVENOUS
     Route: 042
     Dates: start: 20010220
  4. INFLIXIMAB (INFLIXIMAB, RECOMBINANT) [Suspect]
     Indication: CROHN'S DISEASE
     Dosage: 5 MG/KG, INTRAVENOUS
     Route: 042
     Dates: start: 20010312
  5. INFLIXIMAB (INFLIXIMAB, RECOMBINANT) [Suspect]
     Indication: CROHN'S DISEASE
     Dosage: 5 MG/KG, INTRAVENOUS
     Route: 042
     Dates: start: 20010627
  6. INFLIXIMAB (INFLIXIMAB, RECOMBINANT) [Suspect]
     Indication: CROHN'S DISEASE
     Dosage: 5 MG/KG, INTRAVENOUS
     Route: 042
     Dates: start: 20010926
  7. INFLIXIMAB (INFLIXIMAB, RECOMBINANT) [Suspect]
     Indication: CROHN'S DISEASE
     Dosage: 5 MG/KG, INTRAVENOUS
     Route: 042
     Dates: start: 20011201

REACTIONS (1)
  - ENTEROCUTANEOUS FISTULA [None]
